FAERS Safety Report 6225682-3 (Version None)
Quarter: 2009Q2

REPORT INFORMATION
  Report Type: 
  Country: None (occurrence: None)
  Receive Date: 20090612
  Receipt Date: 20090429
  Transmission Date: 20091009
  Serious: No
  Sender: FDA-Public Use
  Company Number: US-ABBOTT-09P-163-0570811-00

PATIENT
  Sex: Male

DRUGS (2)
  1. HUMIRA [Suspect]
     Indication: PSORIASIS
     Route: 058
     Dates: start: 20080701, end: 20090301
  2. HUMIRA [Suspect]
     Route: 058
     Dates: start: 20090401, end: 20090415

REACTIONS (2)
  - RASH GENERALISED [None]
  - SKIN OEDEMA [None]
